FAERS Safety Report 15814232 (Version 1)
Quarter: 2019Q1

REPORT INFORMATION
  Report Type: Spontaneous
  Country: US (occurrence: US)
  Receive Date: 20190111
  Receipt Date: 20190111
  Transmission Date: 20190417
  Serious: Yes (Hospitalization)
  Sender: FDA-Public Use
  Company Number: US-JAZZ-2018-US-005179

PATIENT
  Age: 74 Year
  Sex: Male

DRUGS (9)
  1. PRIALT [Suspect]
     Active Substance: ZICONOTIDE ACETATE
     Dosage: 0.208 ?G, QH
     Route: 037
     Dates: start: 20181012
  2. ALLOPURINOL. [Concomitant]
     Active Substance: ALLOPURINOL
     Indication: PRODUCT USED FOR UNKNOWN INDICATION
  3. PRIALT [Suspect]
     Active Substance: ZICONOTIDE ACETATE
     Dosage: MINIMUM RATE
     Route: 037
     Dates: start: 20180327
  4. LISINOPRIL. [Concomitant]
     Active Substance: LISINOPRIL
     Indication: PRODUCT USED FOR UNKNOWN INDICATION
  5. ATORVASTATIN [Concomitant]
     Active Substance: ATORVASTATIN
     Indication: PRODUCT USED FOR UNKNOWN INDICATION
  6. PRIALT [Suspect]
     Active Substance: ZICONOTIDE ACETATE
     Indication: PAIN
     Dosage: 0.416 ?G, QH
     Route: 037
  7. PRIALT [Suspect]
     Active Substance: ZICONOTIDE ACETATE
     Dosage: 1.04 ?G, QH
     Route: 037
     Dates: start: 2018
  8. PRIALT [Suspect]
     Active Substance: ZICONOTIDE ACETATE
     Dosage: 0.208 ?G, QH
     Route: 037
     Dates: start: 20180813
  9. PRIALT [Suspect]
     Active Substance: ZICONOTIDE ACETATE
     Dosage: UNKNOWN DOSE
     Route: 037
     Dates: start: 20180316, end: 201803

REACTIONS (9)
  - Mental status changes [Recovered/Resolved]
  - Hypotension [Recovered/Resolved]
  - Confusional state [Unknown]
  - Disorientation [Recovered/Resolved]
  - Diplopia [Recovered/Resolved]
  - Memory impairment [Recovered/Resolved]
  - Somnolence [Recovered/Resolved]
  - Balance disorder [Recovered/Resolved]
  - Hallucination [Recovered/Resolved]

NARRATIVE: CASE EVENT DATE: 2018
